FAERS Safety Report 7792403-2 (Version None)
Quarter: 2011Q3

REPORT INFORMATION
  Report Type: 
  Country: None (occurrence: None)
  Receive Date: 20110930
  Receipt Date: 20110930
  Transmission Date: 20111222
  Serious: Yes (Hospitalization)
  Sender: FDA-Public Use
  Company Number: None

PATIENT
  Age: 77 Year
  Sex: Female
  Weight: 42.1845 kg

DRUGS (1)
  1. CLINDAMYCIN HCL [Suspect]
     Indication: TOOTHACHE
     Dosage: 2 CAPSULES TO START; 1 CAPSULE -} EVERY 6 HOURS
     Dates: start: 20110804, end: 20110808

REACTIONS (1)
  - DIARRHOEA [None]
